FAERS Safety Report 7759051-1 (Version None)
Quarter: 2011Q3

REPORT INFORMATION
  Report Type: 
  Country: None (occurrence: None)
  Receive Date: 20110919
  Receipt Date: 20110913
  Transmission Date: 20111222
  Serious: Yes (Other)
  Sender: FDA-Public Use
  Company Number: US-PURDUE-USA-2010-0047683

PATIENT
  Age: 44 Year
  Sex: Male
  Weight: 83 kg

DRUGS (8)
  1. OXYCONTIN [Suspect]
     Dosage: 40 MG, QID
     Dates: start: 19960101
  2. NAPROXEN (ALEVE) [Concomitant]
     Indication: PRODUCT USED FOR UNKNOWN INDICATION
     Dosage: 800 MG, DAILY
  3. OXYCONTIN [Suspect]
     Indication: PAIN MANAGEMENT
     Dosage: 80 MG, QID
  4. OXYCONTIN [Suspect]
     Dosage: 20 MG, QID
     Dates: start: 19960101
  5. OXYCONTIN [Suspect]
     Dosage: 5 MG, UNK
  6. OXYCODONE HCL [Concomitant]
     Indication: BREAKTHROUGH PAIN
     Dosage: 5 MG, QID PRN
     Dates: start: 19960101
  7. DEPO-TESTOSTERONE [Concomitant]
     Indication: BLOOD TESTOSTERONE ABNORMAL
     Dosage: 400 MG, MONTHLY
  8. SYNTHROID [Concomitant]
     Indication: HYPOTHYROIDISM
     Dosage: 75 MCG, DAILY

REACTIONS (14)
  - DRUG WITHDRAWAL SYNDROME [None]
  - LACRIMATION INCREASED [None]
  - FLUSHING [None]
  - FLATULENCE [None]
  - BLOOD POTASSIUM DECREASED [None]
  - CERUMEN IMPACTION [None]
  - PALPITATIONS [None]
  - NASAL CONGESTION [None]
  - REFLUX GASTRITIS [None]
  - NAUSEA [None]
  - BLOOD TESTOSTERONE DECREASED [None]
  - ABDOMINAL DISCOMFORT [None]
  - CHEST DISCOMFORT [None]
  - DIARRHOEA [None]
